FAERS Safety Report 23764403 (Version 2)
Quarter: 2024Q3

REPORT INFORMATION
  Report Type: Spontaneous
  Country: US (occurrence: US)
  Receive Date: 20240420
  Receipt Date: 20240807
  Transmission Date: 20241016
  Serious: No
  Sender: SANOFI AVENTIS
  Company Number: US-SA-SAC20240415001203

PATIENT
  Age: 62 Year
  Sex: Male

DRUGS (1)
  1. DUPIXENT [Suspect]
     Active Substance: DUPILUMAB
     Indication: Eosinophilic pneumonia acute
     Dosage: 300 MG, QOW
     Route: 058

REACTIONS (4)
  - Lacrimation increased [Unknown]
  - Ocular hyperaemia [Unknown]
  - Dry eye [Unknown]
  - Product use in unapproved indication [Unknown]
